FAERS Safety Report 20162430 (Version 1)
Quarter: 2021Q4

REPORT INFORMATION
  Report Type: 
  Country: None (occurrence: TR)
  Receive Date: 20211208
  Receipt Date: 20211208
  Transmission Date: 20220303
  Serious: Yes (Other)
  Sender: FDA-Public Use
  Company Number: None

PATIENT
  Age: 63 Year
  Sex: Male

DRUGS (1)
  1. MOXIFLOXACIN [Suspect]
     Active Substance: MOXIFLOXACIN

REACTIONS (2)
  - Iris transillumination defect [None]
  - Ophthalmoplegia [None]
